FAERS Safety Report 12419303 (Version 4)
Quarter: 2017Q2

REPORT INFORMATION
  Report Type: Spontaneous
  Country: JP (occurrence: JP)
  Receive Date: 20160531
  Receipt Date: 20170502
  Transmission Date: 20170830
  Serious: Yes (Hospitalization, Other)
  Sender: FDA-Public Use
  Company Number: JP-CELGENEUS-JPN-2016015997

PATIENT
  Age: 67 Year
  Sex: Male
  Weight: 71.9 kg

DRUGS (188)
  1. REVLIMID [Suspect]
     Active Substance: LENALIDOMIDE
     Dosage: 10 MILLIGRAM
     Route: 048
     Dates: start: 20160323, end: 20160406
  2. LOXOPROFEN SODIUM [Concomitant]
     Active Substance: LOXOPROFEN SODIUM
     Route: 065
     Dates: start: 20110525, end: 20140114
  3. FLUCONAZOLE. [Concomitant]
     Active Substance: FLUCONAZOLE
     Route: 065
     Dates: start: 20160213
  4. SENNOSIDE [Concomitant]
     Active Substance: SENNOSIDES
     Indication: ADVERSE EVENT
     Route: 065
     Dates: start: 20111207, end: 20140626
  5. LEVOFLOXACIN. [Concomitant]
     Active Substance: LEVOFLOXACIN
     Route: 065
     Dates: start: 20150309, end: 20150311
  6. CEFDITOREN PIVOXIL. [Concomitant]
     Active Substance: CEFDITOREN PIVOXIL
     Indication: ADVERSE EVENT
     Route: 065
     Dates: start: 20140601, end: 20140604
  7. BROMFENAC SODIUM HYDRATE [Concomitant]
     Route: 065
     Dates: start: 20140307, end: 20140401
  8. PRANOPROFEN [Concomitant]
     Active Substance: PRANOPROFEN
     Indication: ADVERSE EVENT
     Route: 065
     Dates: start: 20130322, end: 20140306
  9. PL GRANULE [Concomitant]
     Route: 065
     Dates: start: 20130703, end: 20130705
  10. PL GRANULE [Concomitant]
     Route: 065
     Dates: start: 20140212, end: 20140217
  11. INTAL [Concomitant]
     Active Substance: CROMOLYN SODIUM
     Indication: PRODUCT USED FOR UNKNOWN INDICATION
     Route: 065
     Dates: start: 20140226, end: 20160125
  12. STONA [Concomitant]
     Active Substance: ACETAMINOPHEN\CHLORPHENIRAMINE\DEXTROMETHORPHAN\PHENYLEPHRINE
     Indication: ADVERSE EVENT
     Route: 065
     Dates: start: 20140107, end: 20140107
  13. HEPARIN SODIUM. [Concomitant]
     Active Substance: HEPARIN SODIUM
     Route: 065
     Dates: start: 20160203, end: 20160213
  14. FELBINAC [Concomitant]
     Active Substance: FELBINAC
     Indication: ADVERSE EVENT
     Route: 065
     Dates: start: 20141106, end: 20141113
  15. URSODEOXYCHOLIC ACID [Concomitant]
     Active Substance: URSODIOL
     Indication: PRODUCT USED FOR UNKNOWN INDICATION
     Route: 065
     Dates: start: 20141120, end: 20160128
  16. PROCHLORPERAZINE MALEATE. [Concomitant]
     Active Substance: PROCHLORPERAZINE MALEATE
     Indication: ADVERSE EVENT
     Route: 065
     Dates: start: 20150507, end: 20150515
  17. PERAMIVIR HYDRATE [Concomitant]
     Indication: ADVERSE EVENT
     Route: 065
     Dates: start: 20160125, end: 20160201
  18. INSULIN HUMAN [Concomitant]
     Active Substance: INSULIN HUMAN
     Indication: ADVERSE EVENT
     Route: 065
     Dates: start: 20160128, end: 20160406
  19. PROPOFOL. [Concomitant]
     Active Substance: PROPOFOL
     Indication: ADVERSE EVENT
     Route: 065
     Dates: start: 20160203, end: 20160206
  20. DEXMEDETOMINIDE HYDROCHLORIDE [Concomitant]
     Indication: ADVERSE EVENT
     Route: 065
     Dates: start: 20160206, end: 20160208
  21. HALOPERIDOL. [Concomitant]
     Active Substance: HALOPERIDOL
     Indication: ADVERSE EVENT
     Route: 065
     Dates: start: 20160206, end: 20160208
  22. BETHANECHOL CHLORIDE. [Concomitant]
     Active Substance: BETHANECHOL CHLORIDE
     Indication: PRODUCT USED FOR UNKNOWN INDICATION
     Route: 065
     Dates: start: 20160307
  23. SACCHARATED FERRIC OXIDE [Concomitant]
     Active Substance: IRON SUCROSE
     Indication: PRODUCT USED FOR UNKNOWN INDICATION
     Route: 065
     Dates: start: 20170419
  24. DEXAMETHASONE. [Suspect]
     Active Substance: DEXAMETHASONE
     Route: 065
     Dates: start: 20160511
  25. SENNOSIDE [Concomitant]
     Active Substance: SENNOSIDES
     Route: 065
     Dates: start: 20160224, end: 20160514
  26. ZOLEDRONIC ACID HYDRATE [Concomitant]
     Active Substance: ZOLEDRONIC ACID
     Route: 065
     Dates: start: 20140604, end: 20140604
  27. POSTERISAN [Concomitant]
     Active Substance: LIDOCAINE
     Indication: PRODUCT USED FOR UNKNOWN INDICATION
     Route: 065
     Dates: start: 20120701, end: 20120704
  28. PREGABALIN. [Concomitant]
     Active Substance: PREGABALIN
     Route: 065
     Dates: start: 20120920, end: 20160128
  29. PREGABALIN. [Concomitant]
     Active Substance: PREGABALIN
     Route: 065
     Dates: start: 20160415
  30. ACETAMINOPHEN. [Concomitant]
     Active Substance: ACETAMINOPHEN
     Indication: PRODUCT USED FOR UNKNOWN INDICATION
     Route: 065
     Dates: start: 20160125, end: 20160127
  31. LEVOFLOXACIN. [Concomitant]
     Active Substance: LEVOFLOXACIN
     Route: 065
     Dates: start: 20140212, end: 20140216
  32. BETAMETHASONE SODIUM PHOSPHATE [Concomitant]
     Active Substance: BETAMETHASONE SODIUM PHOSPHATE
     Indication: ADVERSE EVENT
     Route: 065
     Dates: start: 20130118, end: 20130307
  33. PRANOPROFEN [Concomitant]
     Active Substance: PRANOPROFEN
     Route: 065
     Dates: start: 20140402, end: 20150701
  34. PL GRANULE [Concomitant]
     Route: 065
     Dates: start: 20131204, end: 20131209
  35. PL GRANULE [Concomitant]
     Route: 065
     Dates: start: 20150212, end: 20150217
  36. DEQUALINIUM CHLORIDE [Concomitant]
     Active Substance: DEQUALINIUM CHLORIDE
     Indication: ADVERSE EVENT
     Route: 065
     Dates: start: 20130522, end: 20130526
  37. AMBROXOL HYDROCHLORIDE [Concomitant]
     Active Substance: AMBROXOL HYDROCHLORIDE
     Indication: ADVERSE EVENT
     Route: 065
     Dates: start: 20140212, end: 20140217
  38. CLOPERASTINE HYDROCHLORIDE [Concomitant]
     Active Substance: CLOPERASTINE HYDROCHLORIDE
     Indication: ADVERSE EVENT
     Route: 065
     Dates: start: 20140212, end: 20140217
  39. FEXOFENADINE HYDROCHLORIDE. [Concomitant]
     Active Substance: FEXOFENADINE HYDROCHLORIDE
     Indication: PRODUCT USED FOR UNKNOWN INDICATION
     Route: 065
     Dates: start: 20140226, end: 20151202
  40. FEXOFENADINE HYDROCHLORIDE. [Concomitant]
     Active Substance: FEXOFENADINE HYDROCHLORIDE
     Route: 065
     Dates: start: 20160824, end: 20160906
  41. SODIUM GUALENATE HYDRATE [Concomitant]
     Active Substance: SODIUM GUALENATE MONOHYDRATE
     Route: 065
     Dates: start: 20160328
  42. SITAFLOXACIN HYDRATE [Concomitant]
     Indication: ADVERSE EVENT
     Route: 065
     Dates: start: 20141113, end: 20141117
  43. ALCLOMETASONE DIPROPIONATE. [Concomitant]
     Active Substance: ALCLOMETASONE DIPROPIONATE
     Indication: ADVERSE EVENT
     Route: 065
     Dates: start: 20150729, end: 20150817
  44. OLOPATADINE HYDROCHLORIDE. [Concomitant]
     Active Substance: OLOPATADINE HYDROCHLORIDE
     Indication: PRODUCT USED FOR UNKNOWN INDICATION
     Route: 065
     Dates: start: 20151203, end: 20160128
  45. OMEPRAZOLE SODIUM HYDRATE [Concomitant]
     Indication: PRODUCT USED FOR UNKNOWN INDICATION
     Route: 065
     Dates: start: 20160128, end: 20160208
  46. POTASSIUM CHLORIDE. [Concomitant]
     Active Substance: POTASSIUM CHLORIDE
     Indication: ADVERSE EVENT
     Route: 065
     Dates: start: 20160128, end: 20160128
  47. GLYCERIN. [Concomitant]
     Active Substance: GLYCERIN
     Indication: ADVERSE EVENT
     Route: 065
     Dates: start: 20160224, end: 20160430
  48. LOXOPROFEN SODIUM [Concomitant]
     Active Substance: LOXOPROFEN SODIUM
     Indication: PRODUCT USED FOR UNKNOWN INDICATION
     Route: 065
     Dates: start: 20111213
  49. SODIUM PICOSULFATE [Concomitant]
     Active Substance: SODIUM PICOSULFATE
     Indication: ADVERSE EVENT
     Route: 065
     Dates: start: 20111202, end: 20140626
  50. GABAPENTIN. [Concomitant]
     Active Substance: GABAPENTIN
     Indication: ADVERSE EVENT
     Route: 065
     Dates: start: 20120911, end: 20120926
  51. FUROSEMIDE. [Concomitant]
     Active Substance: FUROSEMIDE
     Indication: ADVERSE EVENT
     Route: 065
     Dates: start: 20120911, end: 20140114
  52. INDOMETACIN [Concomitant]
     Active Substance: INDOMETHACIN
     Indication: ADVERSE EVENT
     Route: 065
     Dates: start: 20140412, end: 20160125
  53. LEVOFLOXACIN. [Concomitant]
     Active Substance: LEVOFLOXACIN
     Indication: ADVERSE EVENT
     Route: 065
     Dates: start: 20130509, end: 20130511
  54. LEVOFLOXACIN. [Concomitant]
     Active Substance: LEVOFLOXACIN
     Route: 065
     Dates: start: 20131204, end: 20131208
  55. LEVOFLOXACIN. [Concomitant]
     Active Substance: LEVOFLOXACIN
     Route: 065
     Dates: start: 20160907, end: 20160920
  56. CEFAZOLIN SODIUM. [Concomitant]
     Active Substance: CEFAZOLIN SODIUM
     Indication: ADVERSE EVENT
     Route: 065
     Dates: start: 20130117, end: 20130124
  57. LEVOFLOXACIN HEMIHYDRATE [Concomitant]
     Active Substance: LEVOFLOXACIN
     Indication: ADVERSE EVENT
     Route: 065
     Dates: start: 20130117, end: 20130321
  58. CEFDINIR. [Concomitant]
     Active Substance: CEFDINIR
     Route: 065
     Dates: start: 20150422, end: 20150425
  59. CEFEPIME [Concomitant]
     Active Substance: CEFEPIME HYDROCHLORIDE
     Indication: ADVERSE EVENT
     Route: 065
     Dates: start: 20141105, end: 20141112
  60. WARFARIN POTASSIUM [Concomitant]
     Active Substance: WARFARIN POTASSIUM
     Indication: ADVERSE EVENT
     Route: 065
     Dates: start: 20141106, end: 20141125
  61. EDOXABAN TOSILATE HYDRATE [Concomitant]
     Route: 065
     Dates: start: 20160213
  62. MIYA-BM [Concomitant]
     Active Substance: CLOSTRIDIUM BUTYRICUM SPORES STRAIN M-55
     Indication: ADVERSE EVENT
     Route: 065
     Dates: start: 20150311, end: 20150812
  63. LOPERAMIDE HYDROCHLORIDE. [Concomitant]
     Active Substance: LOPERAMIDE HYDROCHLORIDE
     Indication: ADVERSE EVENT
     Route: 065
     Dates: start: 20150819, end: 20150821
  64. ALBUMINAR [Concomitant]
     Active Substance: ALBUMIN HUMAN
     Indication: ADVERSE EVENT
     Route: 065
     Dates: start: 20160128, end: 20160128
  65. METOCLOPRAMIDE HYDROCHLORIDE. [Concomitant]
     Active Substance: METOCLOPRAMIDE HYDROCHLORIDE
     Indication: ADVERSE EVENT
     Route: 065
     Dates: start: 20160130, end: 20160130
  66. ADSORBIN [Concomitant]
     Active Substance: ALUMINUM SILICATE
     Indication: ADVERSE EVENT
     Route: 065
     Dates: start: 20160208, end: 20160215
  67. NAFTOPIDIL [Concomitant]
     Active Substance: NAFTOPIDIL
     Indication: PRODUCT USED FOR UNKNOWN INDICATION
     Route: 065
     Dates: start: 20160229
  68. ACICLOVIR [Concomitant]
     Active Substance: ACYCLOVIR
     Indication: PRODUCT USED FOR UNKNOWN INDICATION
     Route: 065
     Dates: start: 20111122
  69. FLUCONAZOLE. [Concomitant]
     Active Substance: FLUCONAZOLE
     Indication: PRODUCT USED FOR UNKNOWN INDICATION
     Route: 065
     Dates: start: 20111122
  70. ASPIRIN. [Concomitant]
     Active Substance: ASPIRIN
     Indication: PRODUCT USED FOR UNKNOWN INDICATION
     Route: 065
     Dates: start: 20111122, end: 20130109
  71. SODIUM PICOSULFATE [Concomitant]
     Active Substance: SODIUM PICOSULFATE
     Route: 065
     Dates: start: 20160224, end: 20160319
  72. EURAX H [Concomitant]
     Indication: PRODUCT USED FOR UNKNOWN INDICATION
     Route: 065
     Dates: start: 20120111, end: 20120113
  73. ZOLEDRONIC ACID HYDRATE [Concomitant]
     Active Substance: ZOLEDRONIC ACID
     Indication: PRODUCT USED FOR UNKNOWN INDICATION
     Route: 065
     Dates: start: 20120213, end: 20120213
  74. PURIFIED SODIUM HYALURONATE [Concomitant]
     Indication: PRODUCT USED FOR UNKNOWN INDICATION
     Route: 065
     Dates: start: 20120424, end: 20120508
  75. FUROSEMIDE. [Concomitant]
     Active Substance: FUROSEMIDE
     Route: 065
     Dates: start: 20140924, end: 20150714
  76. LEVOFLOXACIN. [Concomitant]
     Active Substance: LEVOFLOXACIN
     Route: 065
     Dates: start: 20150225, end: 20150303
  77. TIAPROFENIC ACID [Concomitant]
     Active Substance: TIAPROFENIC ACID
     Indication: PRODUCT USED FOR UNKNOWN INDICATION
     Route: 065
     Dates: start: 20130105, end: 20130107
  78. BROMFENAC SODIUM HYDRATE [Concomitant]
     Indication: ADVERSE EVENT
     Route: 065
     Dates: start: 20130117, end: 20130307
  79. PL GRANULE [Concomitant]
     Indication: ADVERSE EVENT
     Route: 065
     Dates: start: 20130522, end: 20130526
  80. PAVRON [Concomitant]
     Indication: ADVERSE EVENT
     Route: 065
     Dates: start: 20140209, end: 20140211
  81. SODIUM GUALENATE HYDRATE [Concomitant]
     Active Substance: SODIUM GUALENATE MONOHYDRATE
     Indication: ADVERSE EVENT
     Route: 065
     Dates: start: 20140604, end: 20140610
  82. SODIUM GUALENATE HYDRATE [Concomitant]
     Active Substance: SODIUM GUALENATE MONOHYDRATE
     Route: 065
     Dates: start: 20160128
  83. ESOMEPRAZOLE MAGNESIUM HYDRATE [Concomitant]
     Route: 065
     Dates: start: 20160209
  84. NORMAL SALINE [Concomitant]
     Active Substance: SODIUM CHLORIDE
     Indication: ADVERSE EVENT
     Route: 065
     Dates: start: 20141105, end: 20141105
  85. MIYA-BM [Concomitant]
     Active Substance: CLOSTRIDIUM BUTYRICUM SPORES STRAIN M-55
     Route: 065
     Dates: start: 20150826, end: 20160128
  86. BIOLACTIS [Concomitant]
     Active Substance: LACTOBACILLUS CASEI
     Indication: ADVERSE EVENT
     Route: 065
     Dates: start: 20160210, end: 20160229
  87. CARBAZOCHROME SODIUM SULFONATE HYDRATE [Concomitant]
     Indication: ADVERSE EVENT
     Route: 065
     Dates: start: 20160226, end: 20160228
  88. ELOTUZUMAB. [Suspect]
     Active Substance: ELOTUZUMAB
     Indication: PLASMA CELL MYELOMA
     Dosage: 10 MILLIGRAM/KILOGRAM
     Route: 041
     Dates: start: 20111122
  89. ASPIRIN. [Concomitant]
     Active Substance: ASPIRIN
     Route: 065
     Dates: start: 20130515, end: 20141104
  90. KETOPROFEN. [Concomitant]
     Active Substance: KETOPROFEN
     Indication: PRODUCT USED FOR UNKNOWN INDICATION
     Route: 065
     Dates: start: 20111130, end: 20111212
  91. PURIFIED SODIUM HYALURONATE [Concomitant]
     Route: 065
     Dates: start: 20121127, end: 20121228
  92. ACETAMINOPHEN. [Concomitant]
     Active Substance: ACETAMINOPHEN
     Route: 065
     Dates: start: 20120813, end: 20120826
  93. LEVOFLOXACIN. [Concomitant]
     Active Substance: LEVOFLOXACIN
     Route: 065
     Dates: start: 20150108, end: 20150114
  94. KN1 [Concomitant]
     Indication: ADVERSE EVENT
     Route: 065
     Dates: start: 20130117, end: 20130124
  95. PL GRANULE [Concomitant]
     Route: 065
     Dates: start: 20140108, end: 20140113
  96. PAVRON [Concomitant]
     Route: 065
     Dates: start: 20150106, end: 20150106
  97. ESOMEPRAZOLE MAGNESIUM HYDRATE [Concomitant]
     Indication: PRODUCT USED FOR UNKNOWN INDICATION
     Route: 065
     Dates: start: 20141022, end: 20160128
  98. ECABET SODIUM HYDRATE [Concomitant]
     Indication: ADVERSE EVENT
     Route: 065
     Dates: start: 20150701, end: 20150826
  99. ASCORBIC ACID. [Concomitant]
     Active Substance: ASCORBIC ACID
     Indication: ADVERSE EVENT
     Route: 065
     Dates: start: 20160127, end: 20160127
  100. VITAMEDIN [Concomitant]
     Active Substance: CYANOCOBALAMIN\PYRIDOXINE HYDROCHLORIDE\THIAMINE
     Indication: ADVERSE EVENT
     Route: 065
     Dates: start: 20160127, end: 20160127
  101. NOREPINEPHRINE. [Concomitant]
     Active Substance: NOREPINEPHRINE
     Indication: ADVERSE EVENT
     Route: 065
     Dates: start: 20160128, end: 20160130
  102. WHITE PETROLATUM [Concomitant]
     Active Substance: PETROLATUM
     Indication: ADVERSE EVENT
     Route: 065
     Dates: start: 20160128, end: 20160514
  103. DAIKENCYUTOU [Concomitant]
     Indication: ADVERSE EVENT
     Route: 065
     Dates: start: 20160130, end: 20160207
  104. BFLUID [Concomitant]
     Active Substance: AMINO ACIDS\DEXTROSE\ELECTROLYTES NOS\VITAMINS
     Indication: ADVERSE EVENT
     Route: 065
     Dates: start: 20160201, end: 20160201
  105. PREDNISOLONE SODIUM SUCCINATE [Concomitant]
     Active Substance: PREDNISOLONE SODIUM SUCCINATE
     Route: 065
     Dates: start: 20160211, end: 20160414
  106. ALBUMIN TANNATE [Concomitant]
     Active Substance: ALBUMIN BOVINE\TANNIC ACID
     Route: 065
     Dates: start: 20160921
  107. RISPERIDONE. [Concomitant]
     Active Substance: RISPERIDONE
     Indication: ADVERSE EVENT
     Route: 065
     Dates: start: 20160208, end: 20160315
  108. GENTAMICIN SULFATE. [Concomitant]
     Active Substance: GENTAMICIN SULFATE
     Indication: PRODUCT USED FOR UNKNOWN INDICATION
     Route: 065
     Dates: start: 20160323, end: 20160329
  109. DEXAMETHASONE. [Suspect]
     Active Substance: DEXAMETHASONE
     Indication: PLASMA CELL MYELOMA
     Dosage: 8 MILLIGRAM
     Route: 041
     Dates: start: 20111122, end: 20160413
  110. TEPRENONE [Concomitant]
     Active Substance: TEPRENONE
     Indication: PRODUCT USED FOR UNKNOWN INDICATION
     Route: 065
     Dates: start: 20110525, end: 20120115
  111. POVIDONE-IODINE. [Concomitant]
     Active Substance: POVIDONE-IODINE
     Indication: PRODUCT USED FOR UNKNOWN INDICATION
     Route: 065
     Dates: start: 20100708, end: 20140603
  112. BAKTAR [Concomitant]
     Active Substance: SULFAMETHOXAZOLE\TRIMETHOPRIM
     Indication: PRODUCT USED FOR UNKNOWN INDICATION
     Route: 065
     Dates: start: 20111122
  113. EURAX H [Concomitant]
     Indication: ADVERSE EVENT
     Route: 065
     Dates: start: 20121219, end: 20121230
  114. BETAMETHASONE BUTYRATE PROPIONATE [Concomitant]
     Active Substance: BETAMETHASONE BUTYRATE PROPIONATE
     Indication: PRODUCT USED FOR UNKNOWN INDICATION
     Route: 065
     Dates: start: 20120114, end: 20120117
  115. ZOLEDRONIC ACID HYDRATE [Concomitant]
     Active Substance: ZOLEDRONIC ACID
     Route: 065
     Dates: start: 20120326, end: 20120326
  116. ZOLEDRONIC ACID HYDRATE [Concomitant]
     Active Substance: ZOLEDRONIC ACID
     Route: 065
     Dates: start: 20130911, end: 20130911
  117. PREGABALIN. [Concomitant]
     Active Substance: PREGABALIN
     Indication: NEUROPATHY PERIPHERAL
     Route: 065
     Dates: start: 20120730, end: 20120812
  118. PREGABALIN. [Concomitant]
     Active Substance: PREGABALIN
     Route: 065
     Dates: start: 20120827, end: 20120910
  119. ETODOLAC. [Concomitant]
     Active Substance: ETODOLAC
     Indication: ADVERSE EVENT
     Route: 065
     Dates: start: 20120911, end: 20120926
  120. LEVOFLOXACIN. [Concomitant]
     Active Substance: LEVOFLOXACIN
     Route: 065
     Dates: start: 20160210, end: 20160425
  121. CEFDITOREN PIVOXIL. [Concomitant]
     Active Substance: CEFDITOREN PIVOXIL
     Indication: PRODUCT USED FOR UNKNOWN INDICATION
     Route: 065
     Dates: start: 20130105, end: 20130107
  122. PAVRON [Concomitant]
     Route: 065
     Dates: start: 20140531, end: 20140602
  123. KENKETSU VENILON-I [Concomitant]
     Active Substance: HUMAN IMMUNOGLOBULIN G
     Indication: ADVERSE EVENT
     Route: 065
     Dates: start: 20141105, end: 20141106
  124. WARFARIN POTASSIUM [Concomitant]
     Active Substance: WARFARIN POTASSIUM
     Route: 065
     Dates: start: 20141126, end: 20150304
  125. URSODEOXYCHOLIC ACID [Concomitant]
     Active Substance: URSODIOL
     Indication: CHOLESTASIS
     Route: 065
     Dates: start: 20141107, end: 20141119
  126. BETAMETHASONE VALERATE. [Concomitant]
     Active Substance: BETAMETHASONE VALERATE
     Indication: ADVERSE EVENT
     Route: 065
     Dates: start: 20141118, end: 20141121
  127. EDOXABAN TOSILATE HYDRATE [Concomitant]
     Indication: PRODUCT USED FOR UNKNOWN INDICATION
     Route: 065
     Dates: start: 20150326, end: 20160128
  128. FULCALIQ [Concomitant]
     Active Substance: AMINO ACIDS\CARBOHYDRATES\ELECTROLYTES NOS\VITAMINS
     Indication: ADVERSE EVENT
     Route: 065
     Dates: start: 20160128, end: 20160131
  129. FENTANYL CITRATE. [Concomitant]
     Active Substance: FENTANYL CITRATE
     Indication: ADVERSE EVENT
     Route: 065
     Dates: start: 20160128, end: 20160207
  130. GLUCOSE [Concomitant]
     Active Substance: DEXTROSE
     Indication: ADVERSE EVENT
     Route: 065
     Dates: start: 20160202, end: 20160206
  131. HALOPERIDOL. [Concomitant]
     Active Substance: HALOPERIDOL
     Route: 065
     Dates: start: 20160212, end: 20160221
  132. ALBUMIN TANNATE [Concomitant]
     Active Substance: ALBUMIN BOVINE\TANNIC ACID
     Indication: ADVERSE EVENT
     Route: 065
     Dates: start: 20160208, end: 20160215
  133. ELENTAL [Concomitant]
     Active Substance: AMINO ACIDS\CARBOHYDRATES\MINERALS\SOYBEAN OIL\VITAMINS
     Indication: ADVERSE EVENT
     Route: 065
     Dates: start: 20160216, end: 20160219
  134. BROMHEXINE HYDROCHLORIDE [Concomitant]
     Active Substance: BROMHEXINE HYDROCHLORIDE
     Indication: ADVERSE EVENT
     Route: 065
     Dates: start: 20160222
  135. FLUNITRAZEPAM [Concomitant]
     Active Substance: FLUNITRAZEPAM
     Indication: ADVERSE EVENT
     Route: 065
     Dates: start: 20160302, end: 20160324
  136. DULOXETINE HYDROCHLORIDE. [Concomitant]
     Active Substance: DULOXETINE HYDROCHLORIDE
     Indication: NEUROPATHY PERIPHERAL
     Route: 065
     Dates: start: 20160322
  137. REVLIMID [Suspect]
     Active Substance: LENALIDOMIDE
     Indication: PLASMA CELL MYELOMA
     Dosage: 10 MILLIGRAM
     Route: 048
     Dates: start: 20111122
  138. TEPRENONE [Concomitant]
     Active Substance: TEPRENONE
     Indication: ADVERSE EVENT
     Route: 065
     Dates: start: 20120827, end: 20150127
  139. BAKTAR [Concomitant]
     Active Substance: SULFAMETHOXAZOLE\TRIMETHOPRIM
     Route: 065
     Dates: start: 20160210, end: 20160727
  140. LANSOPRAZOLE. [Concomitant]
     Active Substance: LANSOPRAZOLE
     Indication: PRODUCT USED FOR UNKNOWN INDICATION
     Route: 065
     Dates: start: 20111122, end: 20141021
  141. ASPIRIN. [Concomitant]
     Active Substance: ASPIRIN
     Route: 065
     Dates: start: 20130130, end: 20130430
  142. ASPIRIN. [Concomitant]
     Active Substance: ASPIRIN
     Route: 065
     Dates: start: 20150312, end: 20150325
  143. MAGNESIUM OXIDE. [Concomitant]
     Active Substance: MAGNESIUM OXIDE
     Indication: PRODUCT USED FOR UNKNOWN INDICATION
     Route: 065
     Dates: start: 20111122, end: 20120731
  144. SODIUM PICOSULFATE [Concomitant]
     Active Substance: SODIUM PICOSULFATE
     Route: 065
     Dates: start: 20160202, end: 20160203
  145. HEPARINOID FROM ANIMAL ORGANS [Concomitant]
     Indication: PRODUCT USED FOR UNKNOWN INDICATION
     Route: 065
     Dates: start: 20120104, end: 20160125
  146. ACETAZOLAMIDE. [Concomitant]
     Active Substance: ACETAZOLAMIDE
     Indication: ADVERSE EVENT
     Route: 065
     Dates: start: 20120508, end: 20120910
  147. LIDOCAINE. [Concomitant]
     Active Substance: LIDOCAINE
     Indication: PRODUCT USED FOR UNKNOWN INDICATION
     Route: 065
     Dates: start: 20120718, end: 20120731
  148. LEVOFLOXACIN. [Concomitant]
     Active Substance: LEVOFLOXACIN
     Route: 065
     Dates: start: 20130522, end: 20130526
  149. LEVOFLOXACIN. [Concomitant]
     Active Substance: LEVOFLOXACIN
     Route: 065
     Dates: start: 20140108, end: 20140112
  150. FLUOROMETHOLONE. [Concomitant]
     Active Substance: FLUOROMETHOLONE
     Indication: ADVERSE EVENT
     Route: 065
     Dates: start: 20130308, end: 20130321
  151. INTAL [Concomitant]
     Active Substance: CROMOLYN SODIUM
     Indication: ADVERSE EVENT
     Route: 065
     Dates: start: 20131204, end: 20141206
  152. INTAL [Concomitant]
     Active Substance: CROMOLYN SODIUM
     Route: 065
     Dates: start: 20160921
  153. FURSULTIAMINE HYDROCHLORIDE [Concomitant]
     Active Substance: FURSULTIAMINE HYDROCHLORIDE
     Indication: ADVERSE EVENT
     Route: 065
     Dates: start: 20140507, end: 20160128
  154. BIOFERMIN R [Concomitant]
     Active Substance: BACILLUS SUBTILIS\LACTOBACILLUS ACIDOPHILUS\STREPTOCOCCUS FAECAIS
     Indication: ADVERSE EVENT
     Route: 065
     Dates: start: 20140702, end: 20150310
  155. HEPARIN SODIUM. [Concomitant]
     Active Substance: HEPARIN SODIUM
     Indication: ADVERSE EVENT
     Dosage: 15000 IU (INTERNATIONAL UNIT)
     Route: 065
     Dates: start: 20141105, end: 20141112
  156. SUCRALFATE HYDRATE [Concomitant]
     Indication: ADVERSE EVENT
     Route: 065
     Dates: start: 20150304, end: 20150311
  157. SOLMAC [Concomitant]
     Indication: ABDOMINAL PAIN UPPER
     Route: 065
     Dates: start: 20150310, end: 20150310
  158. SAIREITOU [Concomitant]
     Indication: ADVERSE EVENT
     Route: 065
     Dates: start: 20150311, end: 20150507
  159. MIYA-BM [Concomitant]
     Active Substance: CLOSTRIDIUM BUTYRICUM SPORES STRAIN M-55
     Route: 065
     Dates: start: 20160207
  160. OXETHAZAINE [Concomitant]
     Active Substance: OXETHAZAINE
     Indication: ADVERSE EVENT
     Route: 065
     Dates: start: 20150729, end: 20150818
  161. HYDROCORTISONE SODIUM SUCCINATE [Concomitant]
     Active Substance: HYDROCORTISONE SODIUM SUCCINATE
     Indication: ADVERSE EVENT
     Route: 065
     Dates: start: 20160127, end: 20160128
  162. ELEJECT [Concomitant]
     Indication: ADVERSE EVENT
     Route: 065
     Dates: start: 20160128, end: 20160131
  163. METHYLPREDNISOLONE SODIUM SUCCINATE. [Concomitant]
     Active Substance: METHYLPREDNISOLONE SODIUM SUCCINATE
     Indication: ADVERSE EVENT
     Route: 065
     Dates: start: 20160128, end: 20160205
  164. TRAZODONE HYDROCHLORIDE. [Concomitant]
     Active Substance: TRAZODONE HYDROCHLORIDE
     Indication: ADVERSE EVENT
     Route: 065
     Dates: start: 20160222, end: 20160514
  165. INSULIN GLARGINE [Concomitant]
     Active Substance: INSULIN GLARGINE
     Indication: ADVERSE EVENT
     Route: 065
     Dates: start: 20160224, end: 20160227
  166. DEXAMETHASONE. [Suspect]
     Active Substance: DEXAMETHASONE
     Dosage: 12 MILLIGRAM
     Route: 048
     Dates: start: 20111122
  167. LOXOPROFEN SODIUM [Concomitant]
     Active Substance: LOXOPROFEN SODIUM
     Route: 065
     Dates: start: 20160301
  168. MONOAMMONIUM GLYCYRRHIZINATE [Concomitant]
     Active Substance: AMMONIUM GLYCYRRHIZATE
     Indication: ADVERSE EVENT
     Route: 065
     Dates: start: 20120927, end: 20121024
  169. INDOMETACIN [Concomitant]
     Active Substance: INDOMETHACIN
     Indication: PRODUCT USED FOR UNKNOWN INDICATION
     Route: 065
     Dates: start: 20120910, end: 20121010
  170. LEVOFLOXACIN. [Concomitant]
     Active Substance: LEVOFLOXACIN
     Indication: PRODUCT USED FOR UNKNOWN INDICATION
     Route: 065
     Dates: start: 20121031, end: 20121102
  171. LEVOFLOXACIN. [Concomitant]
     Active Substance: LEVOFLOXACIN
     Route: 065
     Dates: start: 20150812, end: 20150818
  172. GATIFLOXACIN HYDRATE [Concomitant]
     Indication: ADVERSE EVENT
     Route: 065
     Dates: start: 20130110, end: 20130307
  173. CEFDINIR. [Concomitant]
     Active Substance: CEFDINIR
     Indication: ADVERSE EVENT
     Route: 065
     Dates: start: 20130118, end: 20130127
  174. DEQUALINIUM CHLORIDE [Concomitant]
     Active Substance: DEQUALINIUM CHLORIDE
     Route: 065
     Dates: start: 20131204, end: 20131217
  175. CLOPERASTINE HYDROCHLORIDE [Concomitant]
     Active Substance: CLOPERASTINE HYDROCHLORIDE
     Route: 065
     Dates: start: 20140604, end: 20140608
  176. FURSULTIAMINE HYDROCHLORIDE [Concomitant]
     Active Substance: FURSULTIAMINE HYDROCHLORIDE
     Route: 065
     Dates: start: 20160407, end: 20170111
  177. BIOFERMIN R [Concomitant]
     Active Substance: BACILLUS SUBTILIS\LACTOBACILLUS ACIDOPHILUS\STREPTOCOCCUS FAECAIS
     Route: 065
     Dates: start: 20150813, end: 20150825
  178. CEFEPIME [Concomitant]
     Active Substance: CEFEPIME HYDROCHLORIDE
     Route: 065
     Dates: start: 20150107, end: 20150107
  179. DOMPERIDONE [Concomitant]
     Active Substance: DOMPERIDONE
     Indication: ADVERSE EVENT
     Route: 065
     Dates: start: 20150304, end: 20150306
  180. ECABET SODIUM HYDRATE [Concomitant]
     Route: 065
     Dates: start: 20151021, end: 20160128
  181. MIDAZOLAM [Concomitant]
     Active Substance: MIDAZOLAM HYDROCHLORIDE
     Indication: ADVERSE EVENT
     Route: 065
     Dates: start: 20160128, end: 20160207
  182. DIMETHYL ISOPROPLAZULENE [Concomitant]
     Indication: ADVERSE EVENT
     Route: 065
     Dates: start: 20160128, end: 20160514
  183. BISACODYL. [Concomitant]
     Active Substance: BISACODYL
     Indication: ADVERSE EVENT
     Route: 065
     Dates: start: 20160131, end: 20160205
  184. BFLUID [Concomitant]
     Active Substance: AMINO ACIDS\DEXTROSE\ELECTROLYTES NOS\VITAMINS
     Route: 065
     Dates: start: 20160210, end: 20160225
  185. GLUCOSE [Concomitant]
     Active Substance: DEXTROSE
     Route: 065
     Dates: start: 20160226, end: 20160226
  186. PREDNISOLONE SODIUM SUCCINATE [Concomitant]
     Active Substance: PREDNISOLONE SODIUM SUCCINATE
     Indication: ADVERSE EVENT
     Route: 065
     Dates: start: 20160206, end: 20160210
  187. BROTIZOLAM [Concomitant]
     Active Substance: BROTIZOLAM
     Indication: ADVERSE EVENT
     Route: 065
     Dates: start: 20160302, end: 20160514
  188. RINDERON VG [Concomitant]
     Active Substance: BETAMETHASONE VALERATE\GENTAMICIN SULFATE
     Indication: PRODUCT USED FOR UNKNOWN INDICATION
     Route: 065
     Dates: start: 20160323, end: 20160329

REACTIONS (3)
  - Pneumonia influenzal [Recovered/Resolved]
  - Organising pneumonia [Recovered/Resolved]
  - Hypoxia [Recovered/Resolved]

NARRATIVE: CASE EVENT DATE: 20160125
